FAERS Safety Report 16641017 (Version 1)
Quarter: 2019Q3

REPORT INFORMATION
  Report Type: Spontaneous
  Country: TH (occurrence: TH)
  Receive Date: 20190729
  Receipt Date: 20190729
  Transmission Date: 20191004
  Serious: Yes (Other)
  Sender: FDA-Public Use
  Company Number: TH-AMGEN-THASP2019117549

PATIENT
  Age: 87 Year
  Sex: Female
  Weight: 52 kg

DRUGS (13)
  1. OMEPRAZOLE. [Concomitant]
     Active Substance: OMEPRAZOLE
     Dosage: 20 MILLIGRAM
  2. LOSARTAN. [Concomitant]
     Active Substance: LOSARTAN
     Dosage: 50 MILLIGRAM
  3. CARDIPRIN [ACETYLSALICYLIC ACID] [Concomitant]
     Dosage: 100 MILLIGRAM
  4. CHLOVAS [Concomitant]
  5. METFORMIN HYDROCHLORIDE. [Concomitant]
     Active Substance: METFORMIN HYDROCHLORIDE
     Dosage: 500 MILLIGRAM
  6. DE GAS [Concomitant]
  7. CALTAB [CALCIUM CARBONATE] [Concomitant]
     Dosage: 1.25 UNK
  8. PROLIA [Suspect]
     Active Substance: DENOSUMAB
     Indication: PRODUCT USED FOR UNKNOWN INDICATION
     Dosage: 60 MILLIGRAM
     Route: 065
     Dates: start: 20170915
  9. CALCIFEROL [COLECALCIFEROL] [Concomitant]
     Active Substance: CHOLECALCIFEROL
     Dosage: 20000 IU INTERNATIONAL UNIT(S)
  10. FUROSEMIDE. [Concomitant]
     Active Substance: FUROSEMIDE
     Dosage: 40 MILLIGRAM
  11. BISLOC [Concomitant]
     Dosage: 2.5 MILLIGRAM
  12. LERCADIP [LERCANIDIPINE] [Concomitant]
     Dosage: 20 MILLIGRAM
  13. MONOSORB [Concomitant]
     Dosage: 20 MILLIGRAM

REACTIONS (4)
  - Pemphigoid [Unknown]
  - Rash [Unknown]
  - Deep vein thrombosis [Unknown]
  - Cellulitis [Unknown]

NARRATIVE: CASE EVENT DATE: 20180313
